FAERS Safety Report 21081447 (Version 1)
Quarter: 2022Q3

REPORT INFORMATION
  Report Type: Spontaneous
  Country: CN (occurrence: CN)
  Receive Date: 20220714
  Receipt Date: 20220714
  Transmission Date: 20221027
  Serious: Yes (Other)
  Sender: FDA-Public Use
  Company Number: None

PATIENT
  Age: 59 Year
  Sex: Female
  Weight: 59 kg

DRUGS (8)
  1. CYCLOPHOSPHAMIDE [Suspect]
     Active Substance: CYCLOPHOSPHAMIDE
     Indication: Breast cancer female
     Dosage: UNK,QD,  1-2 CYCLES OF  CHEMOTHERAPY,CYCLOPHOSPHAMIDE+SODIUM CHLORIDE
     Route: 042
  2. CYCLOPHOSPHAMIDE [Suspect]
     Active Substance: CYCLOPHOSPHAMIDE
     Dosage: 900 MG, QD, 3RD CYCLE, CYCLOPHOSPHAMIDE (900 MG) + SODIUM CHLORIDE (45ML)
     Route: 042
     Dates: start: 20220608, end: 20220608
  3. SODIUM CHLORIDE [Suspect]
     Active Substance: SODIUM CHLORIDE
     Indication: Medication dilution
     Dosage: UNK, QD, 1-2 CYCLES OF  CHEMOTHERAPY, CYCLOPHOSPHAMIDE + SODIUM CHLORIDE
     Route: 042
  4. SODIUM CHLORIDE [Suspect]
     Active Substance: SODIUM CHLORIDE
     Dosage: 45 ML, QD, 3RD CYCLE OF CHEMOTHERAPY, CYCLOPHOSPHAMIDE (900 MG) + SODIUM CHLORIDE (45ML)
     Route: 042
     Dates: start: 20220608, end: 20220608
  5. SODIUM CHLORIDE [Suspect]
     Active Substance: SODIUM CHLORIDE
     Dosage: UNK, QD,1-2 CYCLES OF  CHEMOTHERAPY,EPIRUBICIN HYDROCHLORIDE (PHARMORUBICIN)  + SODIUM CHLORIDE
     Route: 041
  6. SODIUM CHLORIDE [Suspect]
     Active Substance: SODIUM CHLORIDE
     Dosage: 100 ML, QD, 3RD CYCLE OF CHEMOTHERAPY, EPIRUBICIN HYDROCHLORIDE (PHARMORUBICIN) (135 MG) + SODIUM CH
     Route: 041
     Dates: start: 20220608, end: 20220608
  7. EPIRUBICIN [Suspect]
     Active Substance: EPIRUBICIN
     Indication: Breast cancer female
     Dosage: UNK,QD,1-2 CYCLES OF  CHEMOTHERAPY,  EPIRUBICIN HYDROCHLORIDE + SODIUM CHLORIDE
     Route: 041
  8. EPIRUBICIN [Suspect]
     Active Substance: EPIRUBICIN
     Dosage: 135 MG, QD,  3RD CYCLE, EPIRUBICIN HYDROCHLORIDE (PHARMORUBICIN) (135 MG) + SODIUM CHLORIDE(100ML).
     Route: 041
     Dates: start: 20220608, end: 20220608

REACTIONS (2)
  - White blood cell count decreased [Recovered/Resolved]
  - Agranulocytosis [Recovered/Resolved]

NARRATIVE: CASE EVENT DATE: 20220617
